FAERS Safety Report 5242727-8 (Version None)
Quarter: 2007Q1

REPORT INFORMATION
  Report Type: 
  Country: None (occurrence: None)
  Receive Date: 20070221
  Receipt Date: 20070219
  Transmission Date: 20070707
  Serious: Yes (Other)
  Sender: FDA-Public Use
  Company Number: AU-GLAXOSMITHKLINE-B0458870A

PATIENT

DRUGS (2)
  1. SERETIDE [Suspect]
     Indication: COUGH
  2. AUGMENTIN '125' [Suspect]

REACTIONS (1)
  - JAUNDICE [None]
